FAERS Safety Report 20730570 (Version 1)
Quarter: 2022Q2

REPORT INFORMATION
  Report Type: Spontaneous
  Country: US (occurrence: None)
  Receive Date: 20220419
  Receipt Date: 20220419
  Transmission Date: 20220721
  Serious: Yes (Other)
  Sender: FDA-Public Use
  Company Number: None

PATIENT
  Age: 73 Year
  Sex: Female

DRUGS (2)
  1. LISINOPRIL [Suspect]
     Active Substance: LISINOPRIL
     Indication: Blood pressure increased
     Dosage: OTHER QUANTITY : 1 TABLET(S);?FREQUENCY : DAILY;?
     Route: 048
     Dates: start: 20220212, end: 20220330
  2. LISINOPRIL [Suspect]
     Active Substance: LISINOPRIL
     Indication: Drug ineffective

REACTIONS (11)
  - Asthenia [None]
  - Dysstasia [None]
  - Myalgia [None]
  - Arthralgia [None]
  - Epistaxis [None]
  - Chest discomfort [None]
  - Headache [None]
  - Pain [None]
  - Drug ineffective [None]
  - Adverse drug reaction [None]
  - Near death experience [None]

NARRATIVE: CASE EVENT DATE: 20220330
